FAERS Safety Report 24667015 (Version 1)
Quarter: 2024Q4

REPORT INFORMATION
  Report Type: Spontaneous
  Country: IT (occurrence: IT)
  Receive Date: 20241126
  Receipt Date: 20241126
  Transmission Date: 20250114
  Serious: Yes (Hospitalization, Other)
  Sender: SANOFI AVENTIS
  Company Number: None

PATIENT
  Age: 73 Year
  Sex: Male

DRUGS (13)
  1. ACETAMINOPHEN [Suspect]
     Active Substance: ACETAMINOPHEN
     Indication: Product used for unknown indication
     Dosage: 8 DF (8 TABLETS OF 1 G (8 G))
     Route: 048
     Dates: start: 20240927, end: 20240927
  2. IBUPROFEN [Suspect]
     Active Substance: IBUPROFEN
     Indication: Product used for unknown indication
     Dosage: 15 DF (15 TABLETS OF 400 MG (6 GRAMS))
     Route: 048
     Dates: start: 20240927, end: 20240927
  3. ASPIRIN [Suspect]
     Active Substance: ASPIRIN
     Indication: Product used for unknown indication
     Dosage: 20 DF (20 TABLETS OF 100 MG (2 GRAMS))
     Route: 048
     Dates: start: 20240927, end: 20240927
  4. FLUOXETINE [Suspect]
     Active Substance: FLUOXETINE HYDROCHLORIDE
     Indication: Product used for unknown indication
     Dosage: 5 DF (5 TABLETS OF 20 MG (100 MG))
     Route: 048
     Dates: start: 20240927, end: 20240927
  5. ATORVASTATIN [Suspect]
     Active Substance: ATORVASTATIN
     Indication: Product used for unknown indication
     Dosage: 56 DF (56 TABLETS OF 40 MG)
     Route: 048
     Dates: start: 20240927, end: 20240927
  6. ACYCLOVIR [Suspect]
     Active Substance: ACYCLOVIR
     Indication: Product used for unknown indication
     Dosage: 7 DF (7 TABLETS OF 800 MG (5,600 MG TOTAL))
     Route: 048
     Dates: start: 20240927, end: 20240927
  7. PANTOPRAZOLE [Suspect]
     Active Substance: PANTOPRAZOLE
     Indication: Product used for unknown indication
     Dosage: 56 DF (56 TABLETS OF 40 MG (2,240 MG TOTAL))
     Route: 048
     Dates: start: 20240927, end: 20240927
  8. CLOPIDOGREL BISULFATE [Suspect]
     Active Substance: CLOPIDOGREL BISULFATE
     Indication: Product used for unknown indication
     Dosage: 42 DF (42 TABLETS OF 75 MG (3,150 MG TOTAL))
     Route: 048
     Dates: start: 20240927, end: 20240927
  9. AMOXICILLIN\CLAVULANATE POTASSIUM [Suspect]
     Active Substance: AMOXICILLIN\CLAVULANATE POTASSIUM
     Dosage: 6 DF (6 TABLETS OF 1 GRAM (6 GRAMS))
     Route: 048
     Dates: start: 20240927, end: 20240927
  10. CIPROFLOXACIN HYDROCHLORIDE [Suspect]
     Active Substance: CIPROFLOXACIN HYDROCHLORIDE
     Indication: Product used for unknown indication
     Dosage: 30 DF (30 TABLETS OF 500 MG (15 GRAMS))
     Route: 048
     Dates: start: 20240927, end: 20240927
  11. BACTRIM [Suspect]
     Active Substance: SULFAMETHOXAZOLE\TRIMETHOPRIM
     Indication: Product used for unknown indication
     Dosage: 8 DF (8 TABLETS OF 800/160 MG)
     Route: 048
     Dates: start: 20240927, end: 20240927
  12. MEDROL [Suspect]
     Active Substance: METHYLPREDNISOLONE
     Indication: Product used for unknown indication
     Dosage: 10 DF (10 TABLETS OF 16 MG (160 MG)
     Route: 048
     Dates: start: 20240927, end: 20240927
  13. XANAX [Suspect]
     Active Substance: ALPRAZOLAM
     Indication: Product used for unknown indication
     Dosage: 10 DF (10 TABLETS OF 0.5 MG (5 MG))
     Route: 048
     Dates: start: 20240927, end: 20240927

REACTIONS (3)
  - Hypotension [Unknown]
  - Poisoning [Unknown]
  - Tachycardia [Unknown]

NARRATIVE: CASE EVENT DATE: 20240927
